FAERS Safety Report 17930593 (Version 1)
Quarter: 2020Q2

REPORT INFORMATION
  Report Type: Spontaneous
  Country: RO (occurrence: RO)
  Receive Date: 20200623
  Receipt Date: 20200623
  Transmission Date: 20200714
  Serious: Yes (Other)
  Sender: FDA-Public Use
  Company Number: RO-AMGEN-ROUSP2020097460

PATIENT
  Age: 50 Year
  Sex: Female
  Weight: 85 kg

DRUGS (8)
  1. CARVEDIOL [Concomitant]
     Active Substance: CARVEDILOL
     Dosage: UNK
  2. EUTHYROX [Concomitant]
     Active Substance: LEVOTHYROXINE SODIUM
     Dosage: UNK
  3. 5-FLUOROURACIL [FLUOROURACIL] [Suspect]
     Active Substance: FLUOROURACIL
     Indication: BREAST CANCER
     Dosage: 1000 MILLIGRAM, Q3WK
     Route: 042
     Dates: start: 20180626, end: 20180828
  4. INDAPAMIDE;PERINDOPRIL [Concomitant]
     Active Substance: INDAPAMIDE\PERINDOPRIL
     Dosage: UNK
  5. CYCLOPHOSPHAMIDE. [Suspect]
     Active Substance: CYCLOPHOSPHAMIDE
     Indication: BREAST CANCER
     Dosage: 1000 MILLIGRAM, Q3WK
     Route: 042
     Dates: start: 20180626, end: 20180828
  6. DOCETAXEL. [Suspect]
     Active Substance: DOCETAXEL
     Indication: BREAST CANCER
     Dosage: 180 MILLIGRAM, Q3WK
     Route: 042
     Dates: start: 20180918, end: 20181120
  7. TRASTUZUMAB. [Suspect]
     Active Substance: TRASTUZUMAB
     Indication: BREAST CANCER
     Dosage: 600 MILLIGRAM, Q3WK
     Route: 042
     Dates: start: 20180918, end: 20190801
  8. EPIRUBICIN [Suspect]
     Active Substance: EPIRUBICIN
     Indication: BREAST CANCER
     Dosage: 180 MILLIGRAM, Q3WK
     Route: 042
     Dates: start: 20180626, end: 20180828

REACTIONS (1)
  - Angina pectoris [Recovered/Resolved]

NARRATIVE: CASE EVENT DATE: 20190713
